FAERS Safety Report 19189807 (Version 1)
Quarter: 2021Q2

REPORT INFORMATION
  Report Type: Spontaneous
  Country: US (occurrence: US)
  Receive Date: 20210428
  Receipt Date: 20210428
  Transmission Date: 20210717
  Serious: Yes (Hospitalization)
  Sender: FDA-Public Use
  Company Number: None

PATIENT
  Sex: Female

DRUGS (1)
  1. MYCOPHENOLATE 500MG ACCORD HEALTHCARE [Suspect]
     Active Substance: MYCOPHENOLATE MOFETIL
     Indication: RAYNAUD^S PHENOMENON
     Route: 048
     Dates: start: 20160215

REACTIONS (3)
  - Blood pressure abnormal [None]
  - Confusional state [None]
  - Blood glucose decreased [None]
